FAERS Safety Report 13596812 (Version 1)
Quarter: 2017Q2

REPORT INFORMATION
  Report Type: Spontaneous
  Country: US (occurrence: US)
  Receive Date: 20170531
  Receipt Date: 20170531
  Transmission Date: 20170830
  Serious: No
  Sender: FDA-Public Use
  Company Number: US-BAYER-2017-090891

PATIENT
  Age: 81 Year
  Sex: Female
  Weight: 58 kg

DRUGS (2)
  1. MIRALAX [Suspect]
     Active Substance: POLYETHYLENE GLYCOL 3350
     Indication: GASTROINTESTINAL DISORDER
     Dosage: UNK UNK, QD
     Route: 048
     Dates: start: 201611
  2. MIRALAX [Suspect]
     Active Substance: POLYETHYLENE GLYCOL 3350
     Indication: GASTROINTESTINAL DISORDER
     Dosage: UNK UNK, IRR (EVERY SECOND OR THIRD DAY)
     Route: 048
     Dates: start: 201703

REACTIONS (5)
  - Abdominal pain [Not Recovered/Not Resolved]
  - Product use issue [Unknown]
  - Faeces discoloured [Unknown]
  - Frequent bowel movements [Not Recovered/Not Resolved]
  - Product use issue [Unknown]

NARRATIVE: CASE EVENT DATE: 201611
